FAERS Safety Report 8505985-X (Version None)
Quarter: 2012Q3

REPORT INFORMATION
  Report Type: 
  Country: None (occurrence: None)
  Receive Date: 20120712
  Receipt Date: 20120704
  Transmission Date: 20120928
  Serious: Yes (Hospitalization)
  Sender: FDA-Public Use
  Company Number: FR-GLAXOSMITHKLINE-B0809993A

PATIENT
  Sex: Female

DRUGS (24)
  1. LYRICA [Suspect]
     Indication: PRODUCT USED FOR UNKNOWN INDICATION
     Route: 065
     Dates: start: 20120424
  2. ERYTHROMYCIN [Suspect]
     Indication: PRODUCT USED FOR UNKNOWN INDICATION
     Route: 065
     Dates: start: 20120425
  3. ATARAX [Suspect]
     Indication: PREMEDICATION
     Route: 065
     Dates: start: 20120423
  4. IPRATROPIUM BROMIDE [Concomitant]
     Route: 065
  5. POLARAMINE [Concomitant]
     Route: 065
  6. TRAMADOL HCL [Concomitant]
     Route: 065
  7. PYOSTACINE [Suspect]
     Indication: PRODUCT USED FOR UNKNOWN INDICATION
     Route: 065
     Dates: start: 20120424
  8. CELEBREX [Suspect]
     Indication: PRODUCT USED FOR UNKNOWN INDICATION
     Route: 065
     Dates: start: 20120424
  9. ZANTAC [Suspect]
     Indication: PREMEDICATION
     Route: 065
     Dates: start: 20120423
  10. ACETAMINOPHEN [Concomitant]
     Route: 065
  11. XYZAL [Concomitant]
     Route: 065
  12. ZOFRAN [Suspect]
     Indication: PRODUCT USED FOR UNKNOWN INDICATION
     Route: 065
     Dates: start: 20120424
  13. TERBUTALINE [Concomitant]
     Route: 065
  14. LEVOFLOXACIN [Concomitant]
     Route: 065
  15. OXYCONTIN [Suspect]
     Indication: PRODUCT USED FOR UNKNOWN INDICATION
     Route: 065
     Dates: start: 20120424
  16. OXYCODONE HCL [Suspect]
     Indication: PRODUCT USED FOR UNKNOWN INDICATION
     Route: 065
     Dates: start: 20120424
  17. KETOPROFEN [Suspect]
     Indication: PRODUCT USED FOR UNKNOWN INDICATION
     Route: 065
     Dates: start: 20120424
  18. ARIXTRA [Concomitant]
     Route: 065
  19. OMEPRAZOLE [Concomitant]
     Route: 065
  20. VANCOMYCIN [Suspect]
     Indication: PRODUCT USED FOR UNKNOWN INDICATION
     Route: 065
     Dates: start: 20120424
  21. ACUPAN [Suspect]
     Indication: PRODUCT USED FOR UNKNOWN INDICATION
     Route: 065
     Dates: start: 20120424
  22. PRADAXA [Suspect]
     Indication: PRODUCT USED FOR UNKNOWN INDICATION
     Route: 065
     Dates: start: 20120425
  23. ATARAX [Concomitant]
     Route: 065
  24. PIASCLEDINE [Concomitant]
     Route: 065

REACTIONS (9)
  - SKIN DISORDER [None]
  - LIVER INJURY [None]
  - TOXIC EPIDERMAL NECROLYSIS [None]
  - CHOLESTASIS [None]
  - INFLAMMATION [None]
  - ACUTE GENERALISED EXANTHEMATOUS PUSTULOSIS [None]
  - OEDEMA [None]
  - ERYTHEMA [None]
  - PYREXIA [None]
